FAERS Safety Report 14305381 (Version 1)
Quarter: 2017Q4

REPORT INFORMATION
  Report Type: Report from Study
  Country: JP (occurrence: JP)
  Receive Date: 20171219
  Receipt Date: 20171219
  Transmission Date: 20180321
  Serious: Yes (Other)
  Sender: FDA-Public Use
  Company Number: JP-OTSUKA-03100-JPN-07-0638

PATIENT
  Age: 34 Year
  Sex: Female

DRUGS (54)
  1. YODEL [Concomitant]
     Active Substance: SENNA LEAF
     Indication: CONSTIPATION
     Dosage: 80 MG, QD
     Route: 048
     Dates: start: 20060419, end: 20061226
  2. HIBERNA [Concomitant]
     Active Substance: PROMETHAZINE HYDROCHLORIDE
     Indication: PARKINSONISM
     Dosage: 50 MG, QD
     Route: 048
     Dates: start: 20060419, end: 20070529
  3. RYTHMODAN [Concomitant]
     Active Substance: DISOPYRAMIDE
     Indication: ARRHYTHMIA
     Dosage: 150 MG, QD
     Route: 048
     Dates: start: 20060920, end: 20070710
  4. SENNA [Concomitant]
     Active Substance: SENNA LEAF\SENNOSIDES\SENNOSIDES A AND B
     Indication: CONSTIPATION
     Dosage: 160 MG, UNK
     Route: 048
     Dates: start: 20060419
  5. ARIPIPRAZOLE. [Suspect]
     Active Substance: ARIPIPRAZOLE
     Dosage: 12 MG, QD
     Route: 048
     Dates: start: 20070711, end: 20070719
  6. PERSANTIN [Concomitant]
     Active Substance: DIPYRIDAMOLE
     Indication: PRODUCT USED FOR UNKNOWN INDICATION
     Dosage: 75 MG, QD
     Route: 048
     Dates: start: 20060419
  7. LODOPIN [Concomitant]
     Active Substance: ZOTEPINE
     Dosage: 200 MG, QD
     Route: 048
     Dates: start: 20060920, end: 20061226
  8. LEVOTOMIN [Concomitant]
     Active Substance: LEVOMEPROMAZINE
     Dosage: 150 MG, QD
     Route: 048
     Dates: start: 20070613, end: 20070710
  9. ATARAX-P [Concomitant]
     Active Substance: HYDROXYZINE HYDROCHLORIDE
     Indication: TENSION
  10. LODOPIN [Concomitant]
     Active Substance: ZOTEPINE
     Indication: SCHIZOPHRENIA
     Dosage: 300 MG, QD
     Route: 048
     Dates: start: 20060419, end: 20060613
  11. VALERIN [Concomitant]
     Active Substance: VALPROATE SODIUM
     Indication: AFFECT LABILITY
  12. LULLAN [Concomitant]
     Active Substance: PEROSPIRONE HYDROCHLORIDE
     Dosage: 32 MG, QD
     Route: 048
     Dates: start: 20060920, end: 20061003
  13. LULLAN [Concomitant]
     Active Substance: PEROSPIRONE HYDROCHLORIDE
     Dosage: 24 MG, QD
     Route: 048
     Dates: start: 20071003, end: 20071008
  14. LEVOTOMIN [Concomitant]
     Active Substance: LEVOMEPROMAZINE
     Indication: SCHIZOPHRENIA
     Dosage: 150 MG, QD
     Route: 048
     Dates: start: 20061227, end: 20070501
  15. VEGETAMIN A [Concomitant]
     Active Substance: CHLORPROMAZINE HYDROCHLORIDE\PHENOBARBITAL\PROMETHAZINE
     Indication: SCHIZOPHRENIA
     Dosage: 1 DF, QD
     Route: 048
     Dates: start: 20070530
  16. VALPROATE SODIUM. [Concomitant]
     Active Substance: VALPROATE SODIUM
     Indication: SCHIZOPHRENIA
     Dosage: 600 MG, UNK
     Route: 048
     Dates: start: 20060419, end: 20071016
  17. ARIPIPRAZOLE. [Suspect]
     Active Substance: ARIPIPRAZOLE
     Indication: SCHIZOPHRENIA
     Dosage: 6 MG, QD
     Route: 048
     Dates: start: 20070417, end: 20070424
  18. ARIPIPRAZOLE. [Suspect]
     Active Substance: ARIPIPRAZOLE
     Dosage: 12 MG, QD
     Route: 048
     Dates: start: 20070425, end: 20070501
  19. ARIPIPRAZOLE. [Suspect]
     Active Substance: ARIPIPRAZOLE
     Dosage: 30 MG, QD
     Route: 048
     Dates: start: 20070530, end: 20070612
  20. LODOPIN [Concomitant]
     Active Substance: ZOTEPINE
     Dosage: 250 MG, QD
     Route: 048
     Dates: start: 20070910, end: 20071002
  21. WYPAX [Concomitant]
     Active Substance: LORAZEPAM
     Indication: AFFECT LABILITY
  22. VALPROATE SODIUM. [Concomitant]
     Active Substance: VALPROATE SODIUM
     Indication: AFFECT LABILITY
  23. CHLORPROMAZINE AND PROMETHAZINE [Concomitant]
     Active Substance: CHLORPROMAZINE\PROMETHAZINE
     Indication: SCHIZOPHRENIA
     Dosage: 1 DF, UNK
     Route: 048
     Dates: start: 20070530
  24. ARIPIPRAZOLE. [Suspect]
     Active Substance: ARIPIPRAZOLE
     Dosage: 24 MG, QD
     Route: 048
     Dates: start: 20070613, end: 20070626
  25. STOMACHIC [Concomitant]
     Active Substance: HERBALS\SODIUM BICARBONATE
     Indication: PRODUCT USED FOR UNKNOWN INDICATION
     Dosage: 1.5 G, QD
     Route: 048
     Dates: start: 20060419
  26. LODOPIN [Concomitant]
     Active Substance: ZOTEPINE
     Dosage: 150 MG, QD
     Route: 048
     Dates: start: 20061227, end: 20070501
  27. LULLAN [Concomitant]
     Active Substance: PEROSPIRONE HYDROCHLORIDE
     Dosage: 48 MG, QD
     Route: 048
     Dates: start: 20060614, end: 20060919
  28. LULLAN [Concomitant]
     Active Substance: PEROSPIRONE HYDROCHLORIDE
     Dosage: 48 MG, QD
     Route: 048
     Dates: start: 20070207, end: 20070515
  29. LULLAN [Concomitant]
     Active Substance: PEROSPIRONE HYDROCHLORIDE
     Dosage: 48 MG, QD
     Route: 048
     Dates: start: 20071009
  30. ISOMYTAL [Concomitant]
     Active Substance: AMOBARBITAL SODIUM
     Dosage: 0.2 G, QD
     Route: 048
     Dates: start: 20071102
  31. HYDROXYZINE PAMOATE. [Concomitant]
     Active Substance: HYDROXYZINE PAMOATE
     Indication: TENSION
  32. CHLORPROMAZINE AND PROMETHAZINE [Concomitant]
     Active Substance: CHLORPROMAZINE\PROMETHAZINE
     Indication: INSOMNIA
  33. LODOPIN [Concomitant]
     Active Substance: ZOTEPINE
     Dosage: 150 MG, QD
     Route: 048
     Dates: start: 20060614, end: 20060919
  34. LULLAN [Concomitant]
     Active Substance: PEROSPIRONE HYDROCHLORIDE
     Indication: SCHIZOPHRENIA
     Dosage: 24 MG, QD
     Route: 048
     Dates: start: 20060419, end: 20060613
  35. LULLAN [Concomitant]
     Active Substance: PEROSPIRONE HYDROCHLORIDE
     Dosage: 16 MG, QD
     Route: 048
     Dates: start: 20070530, end: 20070612
  36. ISOMYTAL [Concomitant]
     Active Substance: AMOBARBITAL SODIUM
     Indication: INSOMNIA
     Dosage: 0.1 G, QD
     Route: 048
     Dates: start: 20060419, end: 20070529
  37. LEVOTOMIN [Concomitant]
     Active Substance: LEVOMEPROMAZINE
     Dosage: 150 MG, QD
     Route: 048
     Dates: start: 20071009
  38. DALMATE [Concomitant]
     Active Substance: FLURAZEPAM HYDROCHLORIDE
     Indication: INSOMNIA
     Dosage: 15 MG, QD
     Route: 048
     Dates: start: 20070530
  39. ATARAX-P [Concomitant]
     Active Substance: HYDROXYZINE HYDROCHLORIDE
     Indication: ANXIETY
     Dosage: 150 MG, QD
     Route: 048
     Dates: start: 20070530, end: 20070710
  40. HYDROXYZINE PAMOATE. [Concomitant]
     Active Substance: HYDROXYZINE PAMOATE
     Indication: ANXIETY
     Dosage: 150 MG, UNK
     Route: 048
     Dates: start: 20070530, end: 20070612
  41. ARIPIPRAZOLE. [Suspect]
     Active Substance: ARIPIPRAZOLE
     Dosage: 18 MG, QD
     Route: 048
     Dates: start: 20070502, end: 20070521
  42. LULLAN [Concomitant]
     Active Substance: PEROSPIRONE HYDROCHLORIDE
     Dosage: 48 MG, QD
     Route: 048
     Dates: start: 20061004, end: 20061226
  43. LULLAN [Concomitant]
     Active Substance: PEROSPIRONE HYDROCHLORIDE
     Dosage: 24 MG, QD
     Route: 048
     Dates: start: 20061227, end: 20070206
  44. LULLAN [Concomitant]
     Active Substance: PEROSPIRONE HYDROCHLORIDE
     Dosage: 32 MG, QD
     Route: 048
     Dates: start: 20070516, end: 20070529
  45. YODEL [Concomitant]
     Active Substance: SENNA LEAF
     Dosage: 160 MG, QD
     Route: 048
     Dates: start: 20061227
  46. VEGETAMIN A [Concomitant]
     Active Substance: CHLORPROMAZINE HYDROCHLORIDE\PHENOBARBITAL\PROMETHAZINE
     Indication: INSOMNIA
     Dosage: 2 DF, QD
     Route: 048
     Dates: start: 20071109
  47. WYPAX [Concomitant]
     Active Substance: LORAZEPAM
     Indication: SEDATION
     Dosage: 3 MG, QD
     Route: 048
     Dates: start: 20070530, end: 20070612
  48. ARIPIPRAZOLE. [Suspect]
     Active Substance: ARIPIPRAZOLE
     Dosage: 24 MG, QD
     Route: 048
     Dates: start: 20070522, end: 20070529
  49. LODOPIN [Concomitant]
     Active Substance: ZOTEPINE
     Dosage: 150 MG, QD
     Route: 048
     Dates: start: 20071003
  50. LEVOTOMIN [Concomitant]
     Active Substance: LEVOMEPROMAZINE
     Dosage: 75 MG, QD
     Route: 048
     Dates: start: 20070502, end: 20070612
  51. ARIPIPRAZOLE. [Suspect]
     Active Substance: ARIPIPRAZOLE
     Dosage: 18 MG, QD
     Route: 048
     Dates: start: 20070627, end: 20070710
  52. ROHYPNOL [Concomitant]
     Active Substance: FLUNITRAZEPAM
     Indication: INSOMNIA
     Dosage: 2 MG, QD
     Route: 048
     Dates: start: 20060419
  53. LODOPIN [Concomitant]
     Active Substance: ZOTEPINE
     Dosage: 150 MG, QD
     Route: 048
     Dates: start: 20070711, end: 20070909
  54. VALERIN [Concomitant]
     Active Substance: VALPROATE SODIUM
     Indication: SCHIZOPHRENIA
     Dosage: 600 MG, QD
     Route: 048
     Dates: start: 20060419, end: 20071016

REACTIONS (6)
  - Abnormal behaviour [Recovered/Resolved]
  - Aggression [Recovered/Resolved]
  - Aggression [Recovered/Resolved]
  - Disinhibition [Recovering/Resolving]
  - Poriomania [Recovering/Resolving]
  - Aggression [Recovered/Resolved]

NARRATIVE: CASE EVENT DATE: 20070420
